FAERS Safety Report 9434257 (Version 1)
Quarter: 2013Q3

REPORT INFORMATION
  Report Type: Report from Study
  Country: BR (occurrence: BR)
  Receive Date: 20130801
  Receipt Date: 20130801
  Transmission Date: 20140515
  Serious: Yes (Disabling, Other)
  Sender: FDA-Public Use
  Company Number: CHNY2013BR001578

PATIENT
  Age: 64 Year
  Sex: Male
  Weight: 43 kg

DRUGS (3)
  1. VOLTAREN EMULGEL [Suspect]
     Indication: PAIN IN EXTREMITY
     Dosage: 8 TO 10 TIMES DAILY
     Route: 061
     Dates: start: 1997
  2. CATAFLAM [Suspect]
     Indication: PAIN
     Dosage: UNK, UNK
     Dates: start: 1997
  3. CORTISONE [Concomitant]
     Indication: PAIN
     Dosage: UNK, UNK
     Dates: start: 1997

REACTIONS (7)
  - Wheelchair user [Recovered/Resolved]
  - Multiple fractures [Recovering/Resolving]
  - Accident [Recovering/Resolving]
  - Mass [Recovering/Resolving]
  - Neck pain [Recovering/Resolving]
  - Pain [Recovering/Resolving]
  - Drug administration error [Unknown]
